FAERS Safety Report 4790521-4 (Version None)
Quarter: 2005Q4

REPORT INFORMATION
  Report Type: 
  Country: None (occurrence: None)
  Receive Date: 20051005
  Receipt Date: 20050919
  Transmission Date: 20060501
  Serious: Yes (Other)
  Sender: FDA-Public Use
  Company Number: USA0509108515

PATIENT
  Age: 57 Year
  Sex: Female

DRUGS (2)
  1. EVISTA [Suspect]
     Indication: OSTEOPOROSIS
     Dosage: 60 MG
     Dates: start: 19950101
  2. CALCIUM GLUCONATE [Concomitant]

REACTIONS (1)
  - LUNG ADENOCARCINOMA STAGE III [None]
